FAERS Safety Report 17452014 (Version 2)
Quarter: 2020Q4

REPORT INFORMATION
  Report Type: Spontaneous
  Country: GB (occurrence: GB)
  Receive Date: 20200224
  Receipt Date: 20201202
  Transmission Date: 20210113
  Serious: Yes (Death, Hospitalization)
  Sender: FDA-Public Use
  Company Number: GB-BAYER-2020-026523

PATIENT
  Age: 73 Year
  Sex: Male

DRUGS (18)
  1. MACITENTAN [Concomitant]
     Active Substance: MACITENTAN
     Dosage: UNK
  2. QVAR [Concomitant]
     Active Substance: BECLOMETHASONE DIPROPIONATE
     Route: 055
  3. MACITENTAN [Concomitant]
     Active Substance: MACITENTAN
  4. OXYGEN. [Concomitant]
     Active Substance: OXYGEN
  5. ACETYLSALICYLIC ACID [Concomitant]
     Active Substance: ASPIRIN
     Dosage: UNK
  6. ACETYLSALICYLIC ACID [Concomitant]
     Active Substance: ASPIRIN
  7. SALBUTAMOL [Concomitant]
     Active Substance: ALBUTEROL
     Dosage: UNK
     Route: 055
  8. SIMVASTATIN. [Concomitant]
     Active Substance: SIMVASTATIN
     Dosage: UNK
  9. BUMETANIDE. [Concomitant]
     Active Substance: BUMETANIDE
     Dosage: UNK
  10. BUMETANIDE. [Concomitant]
     Active Substance: BUMETANIDE
  11. HEPARIN [Suspect]
     Active Substance: HEPARIN SODIUM
     Indication: PULMONARY EMBOLISM
     Dosage: UNK
  12. ADEMPAS [Suspect]
     Active Substance: RIOCIGUAT
     Indication: PULMONARY HYPERTENSION
     Dosage: 1.5 MG, TID
     Route: 048
     Dates: start: 20191115, end: 20191124
  13. OXYGEN. [Concomitant]
     Active Substance: OXYGEN
     Dosage: UNK
  14. SALBUTAMOL [Concomitant]
     Active Substance: ALBUTEROL
     Route: 055
  15. SIMVASTATIN. [Concomitant]
     Active Substance: SIMVASTATIN
  16. ADEMPAS [Suspect]
     Active Substance: RIOCIGUAT
     Indication: PULMONARY HYPERTENSION
     Dosage: 1 MG, TID
     Route: 048
     Dates: start: 20191101
  17. HEPARIN [Suspect]
     Active Substance: HEPARIN SODIUM
     Indication: PULMONARY EMBOLISM
  18. QVAR [Concomitant]
     Active Substance: BECLOMETHASONE DIPROPIONATE
     Dosage: UNK
     Route: 055

REACTIONS (4)
  - Pulmonary embolism [Fatal]
  - Pulmonary arterial hypertension [Fatal]
  - Dyspnoea [Fatal]
  - Duodenal ulcer haemorrhage [Fatal]

NARRATIVE: CASE EVENT DATE: 20191124
